FAERS Safety Report 14153951 (Version 1)
Quarter: 2017Q4

REPORT INFORMATION
  Report Type: Spontaneous
  Country: KR (occurrence: KR)
  Receive Date: 20171102
  Receipt Date: 20171102
  Transmission Date: 20180321
  Serious: Yes (Other)
  Sender: FDA-Public Use
  Company Number: KR-MYLANLABS-2017M1068262

PATIENT
  Age: 55 Year
  Sex: Male

DRUGS (3)
  1. ZOLEDRONIC ACID [Suspect]
     Active Substance: ZOLEDRONIC ACID
     Indication: MEDULLARY THYROID CANCER
     Route: 065
  2. EVEROLIMUS. [Suspect]
     Active Substance: EVEROLIMUS
     Indication: MEDULLARY THYROID CANCER
     Route: 065
  3. CAPECITABINE. [Suspect]
     Active Substance: CAPECITABINE
     Indication: MEDULLARY THYROID CANCER
     Route: 065

REACTIONS (3)
  - Toxocariasis [Unknown]
  - Osteonecrosis of jaw [Unknown]
  - Zoonosis [Unknown]
